FAERS Safety Report 8170217-1 (Version None)
Quarter: 2012Q1

REPORT INFORMATION
  Report Type: 
  Country: None (occurrence: None)
  Receive Date: 20120228
  Receipt Date: 20120221
  Transmission Date: 20120608
  Serious: Yes (Hospitalization)
  Sender: FDA-Public Use
  Company Number: PHHY2010US89703

PATIENT
  Sex: Male

DRUGS (1)
  1. EXJADE [Suspect]
     Indication: SICKLE CELL ANAEMIA
     Dosage: 1250 MG, QD
     Route: 048
     Dates: start: 20101223

REACTIONS (5)
  - FATIGUE [None]
  - DYSPNOEA [None]
  - CONSTIPATION [None]
  - ARTHRITIS [None]
  - ABDOMINAL DISCOMFORT [None]
